FAERS Safety Report 20800836 (Version 2)
Quarter: 2022Q2

REPORT INFORMATION
  Report Type: Spontaneous
  Country: IN (occurrence: IN)
  Receive Date: 20220509
  Receipt Date: 20220630
  Transmission Date: 20220721
  Serious: Yes (Other)
  Sender: FDA-Public Use
  Company Number: IN-PFIZER INC-202101452484

PATIENT
  Age: 59 Year
  Sex: Female
  Weight: 59.5 kg

DRUGS (6)
  1. PALBOCICLIB [Suspect]
     Active Substance: PALBOCICLIB
     Indication: Breast cancer metastatic
     Dosage: 100 MG, 1X/DAY
     Route: 048
     Dates: start: 20201120
  2. PALBOCICLIB [Suspect]
     Active Substance: PALBOCICLIB
     Dosage: 125 MG, 1X/DAY
     Route: 048
  3. FULVESTRANT [Concomitant]
     Active Substance: FULVESTRANT
     Dosage: 1-0-1, AFTER FOOD, MONTHLY
     Route: 030
  4. FULVESTRANT [Concomitant]
     Active Substance: FULVESTRANT
     Dosage: 250 MG, MONTHLY (1-0-0)
     Route: 030
     Dates: start: 20220608
  5. CRESP [Concomitant]
     Dosage: 200 UG, 1X/DAY (1-AFTER BREAKFAST/1-0-0)
     Route: 058
  6. FOLVITE [FOLIC ACID] [Concomitant]
     Dosage: 1 DF, DAILY (AFTER FOOD)

REACTIONS (7)
  - Haemoglobin decreased [Unknown]
  - White blood cell count decreased [Unknown]
  - Platelet count increased [Unknown]
  - Hepatic enzyme increased [Unknown]
  - Body mass index increased [Unknown]
  - Toothache [Unknown]
  - Arthralgia [Unknown]
